FAERS Safety Report 6617015-5 (Version None)
Quarter: 2010Q1

REPORT INFORMATION
  Report Type: 
  Country: None (occurrence: None)
  Receive Date: 20100302
  Receipt Date: 20100212
  Transmission Date: 20100710
  Serious: Yes (Hospitalization)
  Sender: FDA-Public Use
  Company Number: DSA_42624_2010

PATIENT
  Age: 62 Year
  Sex: Female

DRUGS (4)
  1. ENALAPRIL MALEATE AND HYDROCHLOROTHIAZIDE [Suspect]
     Indication: HYPERTENSION
     Dosage: (1 DF QD, DF ORAL)
     Route: 048
     Dates: start: 20090331, end: 20090331
  2. NEBIVOLOL HCL [Suspect]
     Indication: HYPERTENSION
     Dosage: (5 MG QD ORAL)
     Route: 048
  3. ACAMPROSATE CALCIUM [Suspect]
     Indication: ALCOHOLISM
     Dosage: (2 DF TID QD ORAL)
     Route: 048
     Dates: end: 20090401
  4. OXAZEPAM [Suspect]
     Indication: DRUG USE FOR UNKNOWN INDICATION
     Dosage: (75 MG QD ORAL)
     Route: 048
     Dates: end: 20090401

REACTIONS (7)
  - DECREASED APPETITE [None]
  - HAEMODIALYSIS [None]
  - HYPERKALAEMIA [None]
  - HYPOGLYCAEMIA [None]
  - LACTIC ACIDOSIS [None]
  - OLIGURIA [None]
  - RENAL FAILURE ACUTE [None]
